FAERS Safety Report 6683419-8 (Version None)
Quarter: 2010Q2

REPORT INFORMATION
  Report Type: 
  Country: None (occurrence: None)
  Receive Date: 20100415
  Receipt Date: 20100401
  Transmission Date: 20101027
  Serious: Yes (Hospitalization, Other)
  Sender: FDA-Public Use
  Company Number: US-ELI_LILLY_AND_COMPANY-US201003002617

PATIENT
  Sex: Female

DRUGS (1)
  1. EVISTA [Suspect]
     Indication: OSTEOPOROSIS
     Dosage: 60 MG, UNK

REACTIONS (4)
  - DEEP VEIN THROMBOSIS [None]
  - HAEMATOMA [None]
  - INTENTIONAL DRUG MISUSE [None]
  - OSTEOARTHRITIS [None]
